FAERS Safety Report 8004797-3 (Version None)
Quarter: 2011Q4

REPORT INFORMATION
  Report Type: 
  Country: None (occurrence: None)
  Receive Date: 20111223
  Receipt Date: 20111215
  Transmission Date: 20120403
  Serious: Yes (Hospitalization)
  Sender: FDA-Public Use
  Company Number: JP-ASTELLAS-2011JP003459

PATIENT
  Sex: Male

DRUGS (16)
  1. THYMOGLOBULIN [Concomitant]
     Indication: IMMUNOSUPPRESSANT DRUG THERAPY
     Dosage: 25 MG, UID/QD
     Route: 065
     Dates: start: 20100902, end: 20100903
  2. RABEPRAZOLE SODIUM [Concomitant]
     Dosage: 10 MG, UID/QD
     Route: 048
     Dates: start: 20101002, end: 20110101
  3. PROGRAF [Suspect]
     Dosage: 2 MG, BID
     Route: 048
     Dates: start: 20100817
  4. THYMOGLOBULIN [Concomitant]
     Indication: TRANSPLANT
  5. URSO 250 [Concomitant]
     Indication: LIVER TRANSPLANT
  6. PANVITAN [Concomitant]
     Indication: SMALL INTESTINE TRANSPLANT
     Dosage: 0.5 G, BID
     Route: 048
     Dates: start: 20101220
  7. SULFAMETHOXAZOLE AND TRIMETHOPRIM [Concomitant]
     Indication: TRANSPLANT
     Dosage: 0.5 G, UID/QD
     Route: 048
     Dates: start: 20101016
  8. ENTERONON [Concomitant]
     Indication: SMALL INTESTINE TRANSPLANT
     Dosage: 1 G, TID
     Route: 048
     Dates: start: 20101204
  9. METHYLPREDNISOLONE SODIUM SUCCINATE [Concomitant]
     Indication: TRANSPLANT
     Dosage: 20 MG, UID/QD
     Route: 065
     Dates: start: 20100902, end: 20100908
  10. MEDROL [Concomitant]
     Indication: TRANSPLANT
     Dosage: 3 MG, UID/QD
     Route: 048
     Dates: start: 20100909, end: 20101221
  11. STEROID [Concomitant]
     Indication: PROPHYLAXIS AGAINST TRANSPLANT REJECTION
     Route: 065
  12. MARZULENE-S [Concomitant]
     Dosage: 4 G, UNKNOWN/D
     Route: 048
     Dates: start: 20101001
  13. PROGRAF [Suspect]
     Indication: PROPHYLAXIS AGAINST TRANSPLANT REJECTION
     Dosage: 0.03 MG/KG, UNKNOWN/D
     Route: 065
  14. MIYA BM [Concomitant]
     Indication: SMALL INTESTINE TRANSPLANT
     Dosage: 2 G, TID
     Route: 048
     Dates: start: 20101204
  15. CEFOPERAZONE SODIUM [Concomitant]
     Indication: INFECTION PROPHYLAXIS
     Dosage: 0.5 G, BID
     Route: 041
     Dates: start: 20110106, end: 20110109
  16. URSO 250 [Concomitant]
     Indication: HEPATIC FUNCTION ABNORMAL
     Dosage: 100 MG, TID
     Route: 048
     Dates: start: 20101016

REACTIONS (1)
  - INFLUENZA [None]
